FAERS Safety Report 21076934 (Version 2)
Quarter: 2022Q4

REPORT INFORMATION
  Report Type: Spontaneous
  Country: US (occurrence: US)
  Receive Date: 20220713
  Receipt Date: 20221207
  Transmission Date: 20230112
  Serious: No
  Sender: FDA-Public Use
  Company Number: US-VERTEX PHARMACEUTICALS-2022-000730

PATIENT
  Sex: Male
  Weight: 17.914 kg

DRUGS (5)
  1. ORKAMBI [Suspect]
     Active Substance: IVACAFTOR\LUMACAFTOR
     Indication: Cystic fibrosis
     Dosage: 150 MG LUMACAFTOR/ 188 MG IVACAFTOR
     Route: 048
     Dates: start: 20201229, end: 20211201
  2. ORKAMBI [Suspect]
     Active Substance: IVACAFTOR\LUMACAFTOR
     Dosage: REDUCED DOSE, 1 PACKET OF GRANULES (100 MG LUMACAFTOR/125 MG IVACAFTOR), BID
     Route: 048
     Dates: start: 20220627
  3. MIRALAX [Concomitant]
     Active Substance: POLYETHYLENE GLYCOL 3350
     Dosage: 17 G/DOSE POWDER
  4. ALBUTEROL SULFATE [Concomitant]
     Active Substance: ALBUTEROL SULFATE
  5. URSODIOL [Concomitant]
     Active Substance: URSODIOL
     Dosage: 300 MG CAPSULE

REACTIONS (1)
  - Hepatic enzyme increased [Recovered/Resolved]

NARRATIVE: CASE EVENT DATE: 20210101
